FAERS Safety Report 15808579 (Version 7)
Quarter: 2020Q4

REPORT INFORMATION
  Report Type: Spontaneous
  Country: US (occurrence: US)
  Receive Date: 20190110
  Receipt Date: 20201120
  Transmission Date: 20210113
  Serious: Yes (Other)
  Sender: FDA-Public Use
  Company Number: US-SA-2019SA006516

PATIENT

DRUGS (9)
  1. DUPIXENT [Suspect]
     Active Substance: DUPILUMAB
     Indication: PRODUCT USED FOR UNKNOWN INDICATION
     Dosage: 600 MG, 1X
     Route: 058
     Dates: start: 201808, end: 201808
  2. DUPIXENT [Suspect]
     Active Substance: DUPILUMAB
     Dosage: 300 MG, QOW
     Route: 058
     Dates: start: 2018
  3. DUPIXENT [Suspect]
     Active Substance: DUPILUMAB
     Dosage: 600 MG, 1X
     Route: 058
     Dates: start: 201908, end: 201908
  4. ALBUTEROL SULFATE. [Concomitant]
     Active Substance: ALBUTEROL SULFATE
     Dosage: UNK
  5. BREO ELLIPTA [Concomitant]
     Active Substance: FLUTICASONE FUROATE\VILANTEROL TRIFENATATE
     Dosage: UNK
  6. THEOPHYLLINE [Concomitant]
     Active Substance: THEOPHYLLINE ANHYDROUS
     Dosage: UNK
  7. PROAIR HFA [Concomitant]
     Active Substance: ALBUTEROL SULFATE
     Dosage: UNK
  8. DUPIXENT [Suspect]
     Active Substance: DUPILUMAB
     Dosage: 300 MG, QOW
     Route: 058
     Dates: start: 2019
  9. PREDNISONE. [Concomitant]
     Active Substance: PREDNISONE
     Dosage: UNK

REACTIONS (12)
  - Respiration abnormal [Unknown]
  - Skin exfoliation [Unknown]
  - Neck surgery [Unknown]
  - Pneumonia [Unknown]
  - Eye pruritus [Unknown]
  - Injection site reaction [Unknown]
  - Ocular hyperaemia [Unknown]
  - Food allergy [Unknown]
  - Hypotension [Not Recovered/Not Resolved]
  - Spinal operation [Unknown]
  - Nausea [Not Recovered/Not Resolved]
  - Dry eye [Unknown]

NARRATIVE: CASE EVENT DATE: 20181021
